FAERS Safety Report 6743692-4 (Version None)
Quarter: 2010Q2

REPORT INFORMATION
  Report Type: 
  Country: None (occurrence: None)
  Receive Date: 20100527
  Receipt Date: 20100514
  Transmission Date: 20101027
  Serious: Yes (Hospitalization, Other)
  Sender: FDA-Public Use
  Company Number: US-BAYER-201012026NA

PATIENT
  Age: 51 Year
  Sex: Female
  Weight: 70 kg

DRUGS (14)
  1. OCELLA [Suspect]
     Indication: DRUG USE FOR UNKNOWN INDICATION
  2. YASMIN [Suspect]
     Indication: DRUG USE FOR UNKNOWN INDICATION
  3. YAZ [Suspect]
     Indication: DRUG USE FOR UNKNOWN INDICATION
  4. VITAMIN C [Concomitant]
  5. ADVIL LIQUI-GELS [Concomitant]
  6. BIAXIN [Concomitant]
     Dosage: UNIT DOSE: 500 MG
  7. DETROL [Concomitant]
  8. METROGEL [Concomitant]
     Dates: start: 20030101
  9. DETROL LA [Concomitant]
     Indication: STRESS URINARY INCONTINENCE
  10. ALEVE (CAPLET) [Concomitant]
  11. PEPTO-BISMOL [Concomitant]
     Indication: HELICOBACTER GASTRITIS
  12. ZOLOFT [Concomitant]
     Indication: PREMENSTRUAL SYNDROME
     Dosage: UNIT DOSE: 81 MG
  13. ASPIRIN DAILY [Concomitant]
  14. NASACORT [Concomitant]

REACTIONS (7)
  - ABDOMINAL DISTENSION [None]
  - ABDOMINAL PAIN LOWER [None]
  - CHEST PAIN [None]
  - CHOLECYSTITIS [None]
  - DYSPEPSIA [None]
  - EPIGASTRIC DISCOMFORT [None]
  - FOOD INTOLERANCE [None]
